FAERS Safety Report 16027368 (Version 4)
Quarter: 2019Q2

REPORT INFORMATION
  Report Type: Spontaneous
  Country: GR (occurrence: GR)
  Receive Date: 20190304
  Receipt Date: 20190408
  Transmission Date: 20190711
  Serious: Yes (Other)
  Sender: FDA-Public Use
  Company Number: GR-009507513-1902GRC012167

PATIENT
  Sex: Male
  Weight: 70 kg

DRUGS (4)
  1. KEYTRUDA [Interacting]
     Active Substance: PEMBROLIZUMAB
     Dosage: UNK
     Dates: start: 2019
  2. INNOHEP [Interacting]
     Active Substance: TINZAPARIN SODIUM
     Indication: THROMBOSIS PROPHYLAXIS
     Dosage: UNK
     Dates: end: 2019
  3. KEYTRUDA [Suspect]
     Active Substance: PEMBROLIZUMAB
     Indication: NON-SMALL CELL LUNG CANCER
     Dosage: 2 MILLIGRAM/KILOGRAM (2 MG X 70 KG), CYCLICAL
     Dates: start: 201901
  4. KEYTRUDA [Interacting]
     Active Substance: PEMBROLIZUMAB
     Dosage: 200 MILLIGRAM (FLAT DOSE), INFUSION
     Route: 050
     Dates: start: 20190402

REACTIONS (2)
  - Pancytopenia [Recovered/Resolved]
  - Drug interaction [Unknown]

NARRATIVE: CASE EVENT DATE: 2019
